FAERS Safety Report 7222776-0 (Version None)
Quarter: 2011Q1

REPORT INFORMATION
  Report Type: 
  Country: None (occurrence: None)
  Receive Date: 20110112
  Receipt Date: 20110107
  Transmission Date: 20110831
  Serious: Yes (Other)
  Sender: FDA-Public Use
  Company Number: BR-ROCHE-752346

PATIENT
  Sex: Male
  Weight: 123 kg

DRUGS (4)
  1. ZESTRIL [Concomitant]
     Indication: HYPERTENSION
  2. NIMESULIDE [Concomitant]
     Indication: PAIN
  3. TOCILIZUMAB [Suspect]
     Indication: RHEUMATOID ARTHRITIS
     Dosage: FORM: INFUSION
     Route: 042
     Dates: start: 20100204, end: 20110105
  4. PRESSAT [Concomitant]

REACTIONS (6)
  - OEDEMA PERIPHERAL [None]
  - WEIGHT INCREASED [None]
  - BLOOD DISORDER [None]
  - IMPATIENCE [None]
  - SOMNOLENCE [None]
  - FATIGUE [None]
